FAERS Safety Report 23454707 (Version 1)
Quarter: 2024Q1

REPORT INFORMATION
  Report Type: Spontaneous
  Country: US (occurrence: US)
  Receive Date: 20240130
  Receipt Date: 20240130
  Transmission Date: 20240410
  Serious: Yes (Hospitalization, Other)
  Sender: FDA-Public Use
  Company Number: US-DRL-USA-LIT/USA/24/0001366

PATIENT
  Age: 67 Year
  Sex: Female

DRUGS (17)
  1. MYCOPHENOLIC ACID [Suspect]
     Active Substance: MYCOPHENOLIC ACID
     Indication: Lung adenocarcinoma
  2. CYCLOSPORINE [Suspect]
     Active Substance: CYCLOSPORINE
     Indication: Pure white cell aplasia
     Dosage: 150MG IN THE MORNING AND 100MG IN THE EVENING
  3. SULFASALAZINE [Suspect]
     Active Substance: SULFASALAZINE
     Indication: Lung adenocarcinoma
  4. PACLITAXEL [Concomitant]
     Active Substance: PACLITAXEL
     Indication: Lung adenocarcinoma
  5. CARBOPLATIN [Concomitant]
     Active Substance: CARBOPLATIN
     Indication: Lung adenocarcinoma
  6. DURVALUMAB [Concomitant]
     Active Substance: DURVALUMAB
     Indication: Lung adenocarcinoma
     Dosage: 2 CYCLES
     Dates: end: 202202
  7. METRONIDAZOLE [Concomitant]
     Active Substance: METRONIDAZOLE
     Indication: Pneumonia klebsiella
  8. GABAPENTIN [Concomitant]
     Active Substance: GABAPENTIN
     Indication: Lung adenocarcinoma
  9. CEFEPIME [Concomitant]
     Active Substance: CEFEPIME HYDROCHLORIDE
     Indication: Pneumonia klebsiella
  10. VALACYCLOVIR HYDROCHLORIDE [Concomitant]
     Active Substance: VALACYCLOVIR HYDROCHLORIDE
     Indication: Pneumonia klebsiella
  11. VANCOMYCIN [Concomitant]
     Active Substance: VANCOMYCIN
     Indication: Pneumonia klebsiella
  12. MEROPENEM [Concomitant]
     Active Substance: MEROPENEM
     Indication: Pneumonia klebsiella
  13. ACYCLOVIR [Concomitant]
     Active Substance: ACYCLOVIR
     Indication: Pneumonia klebsiella
  14. CASPOFUNGIN [Concomitant]
     Active Substance: CASPOFUNGIN
     Indication: Pneumonia klebsiella
  15. FLUCONAZOLE [Concomitant]
     Active Substance: FLUCONAZOLE
     Indication: Pneumonia klebsiella
  16. PREDNISONE [Concomitant]
     Active Substance: PREDNISONE
     Indication: Pure white cell aplasia
  17. FILGRASTIM [Concomitant]
     Active Substance: FILGRASTIM
     Indication: Pure white cell aplasia

REACTIONS (2)
  - Febrile neutropenia [Recovering/Resolving]
  - Treatment noncompliance [Unknown]
